FAERS Safety Report 8998998 (Version 1)
Quarter: 2013Q1

REPORT INFORMATION
  Report Type: Spontaneous
  Country: US (occurrence: US)
  Receive Date: 20130103
  Receipt Date: 20130103
  Transmission Date: 20140127
  Serious: No
  Sender: FDA-Public Use
  Company Number: US-PFIZER INC-2012332669

PATIENT
  Age: 44 Year
  Sex: Male
  Weight: 72.56 kg

DRUGS (1)
  1. ADVIL PM [Suspect]
     Indication: SLEEP DISORDER
     Dosage: UNK
     Route: 048
     Dates: start: 20121225

REACTIONS (2)
  - Drug ineffective [Unknown]
  - Pain in extremity [Unknown]
